FAERS Safety Report 10224923 (Version 2)
Quarter: 2014Q2

REPORT INFORMATION
  Report Type: Report from Study
  Country: CA (occurrence: CA)
  Receive Date: 20140609
  Receipt Date: 20140618
  Transmission Date: 20141212
  Serious: Yes (Hospitalization, Other)
  Sender: FDA-Public Use
  Company Number: CA-BRISTOL-MYERS SQUIBB COMPANY-20932802

PATIENT
  Age: 57 Year
  Sex: Female

DRUGS (5)
  1. ORENCIA [Suspect]
     Indication: RHEUMATOID ARTHRITIS
     Route: 042
     Dates: start: 20121004
  2. NEXIUM [Concomitant]
  3. CANDESARTAN [Concomitant]
  4. PREDNISONE [Concomitant]
     Indication: RHEUMATOID ARTHRITIS
  5. RISEDRONATE SODIUM [Concomitant]

REACTIONS (3)
  - Clostridium difficile colitis [Recovering/Resolving]
  - Orthostatic hypotension [Recovering/Resolving]
  - Intestinal perforation [Unknown]
